FAERS Safety Report 8213612-4 (Version None)
Quarter: 2012Q1

REPORT INFORMATION
  Report Type: 
  Country: None (occurrence: None)
  Receive Date: 20120315
  Receipt Date: 20120306
  Transmission Date: 20120608
  Serious: Yes (Hospitalization, Disabling, Other)
  Sender: FDA-Public Use
  Company Number: BR-ASTRAZENECA-2012SE16197

PATIENT
  Age: 60 Year
  Sex: Female
  Weight: 83 kg

DRUGS (3)
  1. OMEPRAZOLE [Suspect]
     Indication: GASTRITIS PROPHYLAXIS
     Route: 048
     Dates: start: 20080101
  2. CRESTOR [Suspect]
     Indication: HYPERCHOLESTEROLAEMIA
     Route: 048
     Dates: end: 20111001
  3. CRESTOR [Suspect]
     Route: 048

REACTIONS (5)
  - BRAIN NEOPLASM [None]
  - MOTOR DYSFUNCTION [None]
  - BLOOD PRESSURE INCREASED [None]
  - CONVULSION [None]
  - HEMIPARESIS [None]
